FAERS Safety Report 9306807 (Version 1)
Quarter: 2013Q1

REPORT INFORMATION
  Report Type: Spontaneous
  Country: US (occurrence: None)
  Receive Date: 20130322
  Receipt Date: 20130322
  Transmission Date: 20140127
  Serious: Yes (Other)
  Sender: FDA-Public Use
  Company Number: 130080

PATIENT
  Age: 66 Year
  Sex: Female
  Weight: 68.04 kg

DRUGS (16)
  1. SUPREP BOWEL PREP KIT [Suspect]
     Indication: COLONOSCOPY
     Dosage: *2 X 6 OZ BOTTLE
     Route: 048
     Dates: start: 20130306, end: 20130307
  2. ORENCIA [Concomitant]
  3. IRON INFUSION [Concomitant]
  4. INSULIN [Concomitant]
  5. METFORMIN [Concomitant]
  6. HYDROCHLOROTHIAZIDE [Concomitant]
  7. LISINOPRIL [Concomitant]
  8. TRICOR [Concomitant]
  9. PREMARIN PATCH [Concomitant]
  10. OMEPRAZOLE [Concomitant]
  11. VITAMIN B [Concomitant]
  12. CALCIUM + D [Concomitant]
  13. MULTIVITAMIN [Concomitant]
  14. LYSINE [Concomitant]
  15. BABY ASA [Concomitant]
  16. LOVAZA [Concomitant]

REACTIONS (4)
  - Muscle spasms [None]
  - Blood potassium decreased [None]
  - Dehydration [None]
  - Hypoglycaemia [None]
